FAERS Safety Report 9399236 (Version 3)
Quarter: 2013Q3

REPORT INFORMATION
  Report Type: Spontaneous
  Country: CY (occurrence: None)
  Receive Date: 20130710
  Receipt Date: 20130725
  Transmission Date: 20140515
  Serious: Yes (Other)
  Sender: FDA-Public Use
  Company Number: CY-1199156

PATIENT
  Age: 71 Year
  Sex: Male

DRUGS (8)
  1. AZARGA [Suspect]
     Indication: EYE DISORDER
     Route: 047
     Dates: start: 201112, end: 20130522
  2. TRAVATAN [Suspect]
     Indication: EYE DISORDER
     Route: 047
     Dates: start: 2008, end: 20130522
  3. TRAVATAN [Suspect]
     Indication: EYE DISORDER
     Route: 047
     Dates: end: 20130522
  4. KORANDIL [Concomitant]
  5. DENEX [Concomitant]
  6. TORVACARD [Concomitant]
  7. GLITISOL [Concomitant]
  8. ASPIRIN [Concomitant]

REACTIONS (4)
  - Hypopyon [None]
  - Ulcerative keratitis [None]
  - Cystoid macular oedema [None]
  - Corneal infection [None]
